FAERS Safety Report 9360448 (Version 1)
Quarter: 2013Q2

REPORT INFORMATION
  Report Type: Spontaneous
  Country: US (occurrence: US)
  Receive Date: 20130621
  Receipt Date: 20130621
  Transmission Date: 20140414
  Serious: No
  Sender: FDA-Public Use
  Company Number: US-BAYER-2013-074725

PATIENT
  Age: 64 Year
  Sex: Female

DRUGS (1)
  1. GADAVIST [Suspect]
     Indication: NUCLEAR MAGNETIC RESONANCE IMAGING BRAIN
     Dosage: 7 ML, ONCE, VIA POWER INJECTOR
     Dates: start: 20130505, end: 20130505

REACTIONS (3)
  - Emotional distress [None]
  - Vomiting [None]
  - Nausea [None]
